FAERS Safety Report 4516326-7 (Version None)
Quarter: 2004Q4

REPORT INFORMATION
  Report Type: 
  Country: None (occurrence: None)
  Receive Date: 20041202
  Receipt Date: 20040514
  Transmission Date: 20050328
  Serious: No
  Sender: FDA-Public Use
  Company Number: S04-USA-02595-01

PATIENT
  Age: 56 Year
  Sex: Female

DRUGS (6)
  1. AUGMENTIN '125' [Suspect]
     Route: 065
     Dates: start: 20040409, end: 20040401
  2. LEXAPRO [Suspect]
     Indication: DEPRESSION
     Route: 048
     Dates: start: 20040201
  3. LEVAQUIN [Suspect]
     Indication: INFECTION
     Route: 065
     Dates: start: 20040412, end: 20040101
  4. CALTRATE [Concomitant]
  5. ACTONEL [Concomitant]
  6. FOSAMAX [Concomitant]

REACTIONS (2)
  - ARTHRALGIA [None]
  - BREAST INFECTION [None]
